FAERS Safety Report 5377436-8 (Version None)
Quarter: 2007Q3

REPORT INFORMATION
  Report Type: 
  Country: None (occurrence: None)
  Receive Date: 20070703
  Receipt Date: 20070627
  Transmission Date: 20080115
  Serious: Yes (Hospitalization)
  Sender: FDA-Public Use
  Company Number: B0477573A

PATIENT
  Age: 71 Year
  Sex: Female

DRUGS (3)
  1. AVANDAMET [Suspect]
     Indication: DRUG USE FOR UNKNOWN INDICATION
  2. AMARYL [Concomitant]
  3. BISOPROLOL [Concomitant]

REACTIONS (3)
  - CARDIAC FAILURE [None]
  - NEOVASCULARISATION [None]
  - SWELLING [None]
